FAERS Safety Report 5625557-4 (Version None)
Quarter: 2008Q1

REPORT INFORMATION
  Report Type: 
  Country: None (occurrence: None)
  Receive Date: 20080214
  Receipt Date: 20080205
  Transmission Date: 20080703
  Serious: Yes (Death)
  Sender: FDA-Public Use
  Company Number: SE-TEVA-167228ISR

PATIENT
  Age: 32 Year
  Sex: Male

DRUGS (2)
  1. PACLITAXEL [Suspect]
     Dates: start: 20070301, end: 20071201
  2. BEVACIZUMAB (AVASTATIN) [Suspect]
     Indication: BREAST CANCER
     Dates: start: 20070301

REACTIONS (3)
  - MOVEMENT DISORDER [None]
  - SKIN INDURATION [None]
  - SKIN TIGHTNESS [None]
